FAERS Safety Report 14794733 (Version 10)
Quarter: 2023Q4

REPORT INFORMATION
  Report Type: Spontaneous
  Country: US (occurrence: US)
  Receive Date: 20180423
  Receipt Date: 20231227
  Transmission Date: 20240109
  Serious: Yes (Hospitalization, Other)
  Sender: FDA-Public Use
  Company Number: US-009507513-1710USA001034

PATIENT
  Sex: Female
  Weight: 99.8 kg

DRUGS (19)
  1. ZOSTAVAX [Suspect]
     Active Substance: VARICELLA-ZOSTER VIRUS STRAIN OKA/MERCK LIVE ANTIGEN
     Indication: Routine health maintenance
     Dosage: .65 MILLILITER
     Route: 058
     Dates: start: 20151019, end: 20151019
  2. ZOSTAVAX [Suspect]
     Active Substance: VARICELLA-ZOSTER VIRUS STRAIN OKA/MERCK LIVE ANTIGEN
     Indication: Prophylaxis
  3. STERILE DILUENT (WATER) [Suspect]
     Active Substance: WATER
     Indication: Routine health maintenance
     Dosage: 0.7 ML, ONCE
     Route: 058
     Dates: start: 20151019, end: 20151019
  4. STERILE DILUENT (WATER) [Suspect]
     Active Substance: WATER
     Indication: Prophylaxis
  5. ZOCOR [Suspect]
     Active Substance: SIMVASTATIN
     Dosage: UNK
  6. GABAPENTIN [Suspect]
     Active Substance: GABAPENTIN
     Dosage: UNK
     Route: 065
     Dates: start: 201512
  7. TEGRETOL [Suspect]
     Active Substance: CARBAMAZEPINE
     Indication: Pain
     Dosage: UNK
     Route: 065
     Dates: start: 201512
  8. CLOTRIMAZOLE [Suspect]
     Active Substance: CLOTRIMAZOLE
  9. ALLOPURINOL [Suspect]
     Active Substance: ALLOPURINOL
  10. BACLOFEN [Suspect]
     Active Substance: BACLOFEN
  11. DICLOFENAC SODIUM [Suspect]
     Active Substance: DICLOFENAC\DICLOFENAC SODIUM
  12. IBUPROFEN [Suspect]
     Active Substance: IBUPROFEN
  13. NAPROXEN [Suspect]
     Active Substance: NAPROXEN
  14. TOPIRAMATE [Suspect]
     Active Substance: TOPIRAMATE
  15. ACETAMINOPHEN [Suspect]
     Active Substance: ACETAMINOPHEN
  16. CARBAMAZEPINE [Suspect]
     Active Substance: CARBAMAZEPINE
  17. PAMELOR [Suspect]
     Active Substance: NORTRIPTYLINE HYDROCHLORIDE
  18. VENLAFAXINE [Suspect]
     Active Substance: VENLAFAXINE HYDROCHLORIDE
  19. KLONOPIN [Concomitant]
     Active Substance: CLONAZEPAM
     Indication: Restless legs syndrome
     Dosage: UNK

REACTIONS (79)
  - Hallucination [Unknown]
  - Deafness [Recovered/Resolved]
  - Post-traumatic stress disorder [Not Recovered/Not Resolved]
  - Transient ischaemic attack [Unknown]
  - Suicidal ideation [Unknown]
  - Gastrointestinal disorder [Unknown]
  - Bipolar I disorder [Unknown]
  - Meniscus operation [Unknown]
  - Major depression [Not Recovered/Not Resolved]
  - Cerebral atrophy [Unknown]
  - Cataract [Unknown]
  - Major depression [Unknown]
  - Borderline personality disorder [Unknown]
  - Toothache [Unknown]
  - Vaccination failure [Not Recovered/Not Resolved]
  - Trigeminal neuralgia [Not Recovered/Not Resolved]
  - Eye disorder [Not Recovered/Not Resolved]
  - Gait disturbance [Not Recovered/Not Resolved]
  - Cough [Unknown]
  - Insomnia [Recovering/Resolving]
  - Dysphoria [Unknown]
  - Pruritus allergic [Unknown]
  - Hyperhidrosis [Unknown]
  - Depression [Unknown]
  - Chills [Unknown]
  - Dizziness [Unknown]
  - Eye pain [Unknown]
  - Lip pain [Unknown]
  - Facial pain [Unknown]
  - Musculoskeletal stiffness [Unknown]
  - Vomiting [Unknown]
  - Brain fog [Unknown]
  - Nightmare [Unknown]
  - Eye pain [Unknown]
  - Dyspnoea [Unknown]
  - Flushing [Unknown]
  - Anxiety [Unknown]
  - Dry eye [Unknown]
  - Oropharyngeal pain [Unknown]
  - Chromaturia [Unknown]
  - Urine albumin/creatinine ratio increased [Unknown]
  - Faeces discoloured [Unknown]
  - Glucose urine present [Unknown]
  - Visual impairment [Unknown]
  - Urticaria [Unknown]
  - Restless legs syndrome [Unknown]
  - Drug eruption [Unknown]
  - Visual impairment [Unknown]
  - Lymph node pain [Unknown]
  - Dermatitis [Unknown]
  - Supraventricular tachycardia [Unknown]
  - Arthroscopy [Unknown]
  - Lumbar spinal stenosis [Unknown]
  - Intervertebral disc degeneration [Unknown]
  - Lumbosacral radiculopathy [Unknown]
  - Otitis externa [Unknown]
  - Gout [Unknown]
  - Blood sodium abnormal [Unknown]
  - Blood chloride abnormal [Unknown]
  - Temporomandibular joint syndrome [Unknown]
  - Ear pain [Unknown]
  - Herpes zoster [Not Recovered/Not Resolved]
  - Asthenia [Unknown]
  - Nausea [Unknown]
  - Nausea [Unknown]
  - Arthralgia [Unknown]
  - Drug hypersensitivity [Unknown]
  - Myalgia [Unknown]
  - Headache [Unknown]
  - Sacral pain [Recovering/Resolving]
  - Neck pain [Recovering/Resolving]
  - Chest pain [Recovering/Resolving]
  - Migraine [Unknown]
  - Joint injury [Unknown]
  - Arthralgia [Unknown]
  - Pain in extremity [Unknown]
  - Seasonal allergy [Unknown]
  - Haemorrhoids [Unknown]
  - Abdominal pain lower [Recovered/Resolved]

NARRATIVE: CASE EVENT DATE: 20150101
